FAERS Safety Report 17675607 (Version 1)
Quarter: 2020Q2

REPORT INFORMATION
  Report Type: Spontaneous
  Country: US (occurrence: US)
  Receive Date: 20200416
  Receipt Date: 20200416
  Transmission Date: 20200714
  Serious: Yes (Other)
  Sender: FDA-Public Use
  Company Number: None

PATIENT
  Age: 57 Year
  Sex: Female
  Weight: 52.16 kg

DRUGS (8)
  1. RANITIDINE (ZANTAC EQ) 150MG TAB [Suspect]
     Active Substance: RANITIDINE
     Indication: GASTROOESOPHAGEAL REFLUX DISEASE
     Dosage: ?          QUANTITY:2 PILLS;?
     Route: 048
     Dates: start: 20190913, end: 20190924
  2. SINGULAIR [Concomitant]
     Active Substance: MONTELUKAST SODIUM
  3. PROTONIX [Concomitant]
     Active Substance: PANTOPRAZOLE SODIUM
  4. FIBER [Concomitant]
     Active Substance: PSYLLIUM HUSK
  5. LIPITOR [Concomitant]
     Active Substance: ATORVASTATIN CALCIUM
  6. CINNAMON CAPSULE [Concomitant]
  7. NATURE-THROID [Concomitant]
     Active Substance: THYROID, PORCINE
  8. FISH OIL [Concomitant]
     Active Substance: FISH OIL

REACTIONS (1)
  - Nausea [None]

NARRATIVE: CASE EVENT DATE: 20190913
